FAERS Safety Report 10267375 (Version 2)
Quarter: 2014Q3

REPORT INFORMATION
  Report Type: Report from Study
  Country: JP (occurrence: JP)
  Receive Date: 20140630
  Receipt Date: 20140723
  Transmission Date: 20150326
  Serious: Yes (Hospitalization, Other)
  Sender: FDA-Public Use
  Company Number: JP-ROCHE-1423761

PATIENT
  Age: 70 Year
  Sex: Female
  Weight: 39 kg

DRUGS (5)
  1. PACLITAXEL. [Suspect]
     Active Substance: PACLITAXEL
     Indication: BREAST CANCER METASTATIC
     Route: 041
     Dates: start: 20140526
  2. BEVACIZUMAB [Suspect]
     Active Substance: BEVACIZUMAB
     Indication: BREAST CANCER METASTATIC
     Dosage: LAST DOSE PRIOR TO EVENT:10/JUN/2014
     Route: 041
     Dates: start: 20140526
  3. BEVACIZUMAB [Suspect]
     Active Substance: BEVACIZUMAB
     Route: 065
     Dates: start: 20140630
  4. PACLITAXEL. [Suspect]
     Active Substance: PACLITAXEL
     Route: 065
     Dates: start: 20140630
  5. ENSURE LIQUID [Concomitant]
     Route: 065
     Dates: start: 20140612, end: 201406

REACTIONS (5)
  - Hypertension [Not Recovered/Not Resolved]
  - Enterocolitis [Unknown]
  - Gingivitis [Unknown]
  - Ileus [Not Recovered/Not Resolved]
  - Diarrhoea [Unknown]

NARRATIVE: CASE EVENT DATE: 20140529
